FAERS Safety Report 13264158 (Version 1)
Quarter: 2017Q1

REPORT INFORMATION
  Report Type: Spontaneous
  Country: US (occurrence: US)
  Receive Date: 20170223
  Receipt Date: 20170223
  Transmission Date: 20170428
  Serious: No
  Sender: FDA-Public Use
  Company Number: US-ASTRAZENECA-2017SE16566

PATIENT
  Sex: Female

DRUGS (2)
  1. BYDUREON [Suspect]
     Active Substance: EXENATIDE
     Dosage: BYDUREON PEN 2 MG ONCE A WEEK
     Route: 065
  2. BYDUREON [Suspect]
     Active Substance: EXENATIDE
     Dosage: BYDUREON SDT 2 MG ONCE A WEEK
     Route: 065

REACTIONS (4)
  - Medication error [Unknown]
  - Intentional product misuse [Unknown]
  - Device malfunction [Unknown]
  - Malabsorption [Unknown]
